FAERS Safety Report 12109580 (Version 1)
Quarter: 2016Q1

REPORT INFORMATION
  Report Type: Spontaneous
  Country: US (occurrence: None)
  Receive Date: 20160223
  Receipt Date: 20160223
  Transmission Date: 20160526
  Serious: No
  Sender: FDA-Public Use
  Company Number: None

PATIENT
  Age: 64 Year
  Sex: Male
  Weight: 72.7 kg

DRUGS (2)
  1. HARVONI [Suspect]
     Active Substance: LEDIPASVIR\SOFOSBUVIR
     Indication: CHRONIC HEPATITIS C
     Dosage: 90-400 MG
     Route: 048
     Dates: start: 20151218
  2. RIBAVIRIN 200 MG ZYDUS [Suspect]
     Active Substance: RIBAVIRIN
     Route: 048

REACTIONS (4)
  - Confusional state [None]
  - Depression [None]
  - Abdominal discomfort [None]
  - Irritability [None]

NARRATIVE: CASE EVENT DATE: 20160128
